FAERS Safety Report 4522876-X (Version None)
Quarter: 2004Q4

REPORT INFORMATION
  Report Type: 
  Country: None (occurrence: None)
  Receive Date: 20041208
  Receipt Date: 20041122
  Transmission Date: 20050328
  Serious: Yes (Other)
  Sender: FDA-Public Use
  Company Number: S04-UKI-07892-01

PATIENT
  Sex: Female

DRUGS (7)
  1. CIPRALEX (ESCITALOPRAM) [Suspect]
     Indication: DEPRESSION
     Dosage: 20 MG QD PO
     Route: 048
     Dates: start: 20040823, end: 20041021
  2. PROMAZINE HCL [Concomitant]
  3. TRIMETHOPRIM [Concomitant]
  4. CETIRIZINE HCL [Concomitant]
  5. THYROXINE ^APS^ (LEVOTHYROXINE SODIUM) [Concomitant]
  6. CO-AMILOFRUSE [Concomitant]
  7. SUMATRIPTAN SUCCINATE [Concomitant]

REACTIONS (2)
  - CONTUSION [None]
  - FAECES DISCOLOURED [None]
